FAERS Safety Report 16260559 (Version 4)
Quarter: 2019Q4

REPORT INFORMATION
  Report Type: Spontaneous
  Country: JP (occurrence: JP)
  Receive Date: 20190501
  Receipt Date: 20191018
  Transmission Date: 20200122
  Serious: Yes (Death, Other)
  Sender: FDA-Public Use
  Company Number: JP-ASTRAZENECA-2019SE64666

PATIENT
  Age: 80 Year
  Sex: Male

DRUGS (7)
  1. TAGRISSO [Suspect]
     Active Substance: OSIMERTINIB
     Indication: NON-SMALL CELL LUNG CANCER
     Route: 048
     Dates: start: 20180803, end: 20190330
  2. EDIROL [Concomitant]
     Active Substance: ELDECALCITOL
     Dosage: DOSE UNKNOWN
     Route: 065
  3. BEPRICOR [Concomitant]
     Active Substance: BEPRIDIL
     Dosage: DOSE UNKNOWN
     Route: 065
  4. FAMOTIDINE. [Concomitant]
     Active Substance: FAMOTIDINE
     Dosage: DOSE UNKNOWN
     Route: 065
  5. DAIPHEN [Concomitant]
     Active Substance: SULFAMETHOXAZOLE\TRIMETHOPRIM
     Dosage: DOSE UNKNOWN
     Route: 065
  6. FEBURIC [Concomitant]
     Active Substance: FEBUXOSTAT
     Dosage: DOSE UNKNOWN
     Route: 065
  7. WARFARIN [Concomitant]
     Active Substance: WARFARIN
     Dosage: DOSE UNKNOWN
     Route: 065

REACTIONS (4)
  - Cryptococcosis [Unknown]
  - Cardiac failure acute [Fatal]
  - Lung disorder [Fatal]
  - Interstitial lung disease [Unknown]

NARRATIVE: CASE EVENT DATE: 20190330
